FAERS Safety Report 11375833 (Version 3)
Quarter: 2015Q3

REPORT INFORMATION
  Report Type: Report from Study
  Country: HR (occurrence: HR)
  Receive Date: 20150813
  Receipt Date: 20150908
  Transmission Date: 20151125
  Serious: Yes (Hospitalization)
  Sender: FDA-Public Use
  Company Number: HR-ASTELLAS-2015US028292

PATIENT

DRUGS (10)
  1. CELLCEPT [Concomitant]
     Active Substance: MYCOPHENOLATE MOFETIL\MYCOPHENOLATE MOFETIL HYDROCHLORIDE
     Indication: IMMUNOSUPPRESSION
     Dosage: 1500 MG, DAILY
     Route: 065
     Dates: start: 20071103
  2. PRITOR                             /01421801/ [Concomitant]
     Indication: HYPERTENSION
     Dosage: 40 MG,DAILY
     Route: 048
     Dates: start: 2007
  3. ASPIRIN PROTEC [Concomitant]
     Indication: ARTERIOSCLEROSIS
     Dosage: 100 MG, DAILY
     Route: 048
  4. TACROLIMUS. [Suspect]
     Active Substance: TACROLIMUS
     Indication: IMMUNOSUPPRESSION
     Dosage: 1 MG, DAILY
     Route: 048
     Dates: start: 20121026
  5. DECORTIN [Suspect]
     Active Substance: PREDNISONE
     Indication: IMMUNOSUPPRESSION
     Dosage: 5 MG, DAILY
     Route: 048
     Dates: start: 19960809
  6. CONTROLOC                          /01263201/ [Concomitant]
     Indication: PROPHYLAXIS
     Dosage: 20 MG, DAILY
     Route: 048
     Dates: start: 2007
  7. PIGREL [Concomitant]
     Indication: CEREBRAL INFARCTION
     Dosage: 75 MG, DAILY
     Route: 048
     Dates: start: 2013
  8. NORVASC [Concomitant]
     Active Substance: AMLODIPINE BESYLATE
     Indication: HYPERTENSION
     Dosage: 5 MG,DAILY
     Route: 048
     Dates: start: 20141015
  9. TULIP                              /01326102/ [Concomitant]
     Indication: DYSLIPIDAEMIA
     Dosage: 20 MG, DAILY
     Route: 048
     Dates: start: 2007
  10. BYOL [Concomitant]
     Active Substance: BISOPROLOL
     Indication: HYPERTENSION
     Dosage: 5 MG, DAILY
     Route: 048
     Dates: start: 2015

REACTIONS (1)
  - Ischaemic stroke [Recovered/Resolved]

NARRATIVE: CASE EVENT DATE: 20150616
